FAERS Safety Report 10402136 (Version 1)
Quarter: 2014Q3

REPORT INFORMATION
  Report Type: Spontaneous
  Country: GB (occurrence: None)
  Receive Date: 20140819
  Receipt Date: 20140819
  Transmission Date: 20150326
  Serious: Yes (Hospitalization, Other)
  Sender: FDA-Public Use
  Company Number: CL-579-2014

PATIENT
  Age: 19 Year
  Sex: Male

DRUGS (9)
  1. RISPERIDONE. [Suspect]
     Active Substance: RISPERIDONE
     Indication: HALLUCINATION
  2. CLONAZEPAM. [Suspect]
     Active Substance: CLONAZEPAM
     Indication: HALLUCINATION
  3. VALPROIC ACID DIVALPROX [Suspect]
     Active Substance: VALPROIC ACID
     Indication: HALLUCINATION
  4. CLONAZEPAM. [Suspect]
     Active Substance: CLONAZEPAM
     Indication: DELUSION
  5. RISPERIDONE. [Suspect]
     Active Substance: RISPERIDONE
     Indication: DELUSION
  6. VALPROIC ACID DIVALPROX [Suspect]
     Active Substance: VALPROIC ACID
     Indication: DELUSION
  7. ONDANSETRON [Suspect]
     Active Substance: ONDANSETRON
  8. LITHIUM [Suspect]
     Active Substance: LITHIUM CARBONATE
     Indication: DELUSION
  9. LITHIUM [Suspect]
     Active Substance: LITHIUM CARBONATE
     Indication: HALLUCINATION

REACTIONS (7)
  - Serotonin syndrome [None]
  - Neuroleptic malignant syndrome [None]
  - Hypocalcaemia [None]
  - Drug interaction [None]
  - Hyperthermia [None]
  - Pneumonia [None]
  - Pneumonia aspiration [None]
